FAERS Safety Report 4425792-7 (Version None)
Quarter: 2004Q3

REPORT INFORMATION
  Report Type: 
  Country: None (occurrence: None)
  Receive Date: 20040810
  Receipt Date: 20040729
  Transmission Date: 20050211
  Serious: Yes (Death)
  Sender: FDA-Public Use
  Company Number: 2004JP001474

PATIENT
  Age: 45 Year
  Sex: Male

DRUGS (3)
  1. PROGRAF [Suspect]
     Indication: RENAL TRANSPLANT
     Dosage: 3.50; 4.00; 4.50 MG, BID, ORAL
     Route: 048
     Dates: start: 19970123, end: 19970126
  2. PROGRAF [Suspect]
     Indication: RENAL TRANSPLANT
     Dosage: 3.50; 4.00; 4.50 MG, BID, ORAL
     Route: 048
     Dates: start: 19970127, end: 19970127
  3. PROGRAF [Suspect]
     Indication: RENAL TRANSPLANT
     Dosage: 3.50; 4.00; 4.50 MG, BID, ORAL
     Route: 048
     Dates: start: 19970128, end: 20001201

REACTIONS (3)
  - HAEMODIALYSIS [None]
  - LUNG NEOPLASM MALIGNANT [None]
  - RENAL FAILURE CHRONIC [None]
